FAERS Safety Report 14724147 (Version 6)
Quarter: 2018Q2

REPORT INFORMATION
  Report Type: Report from Study
  Country: US (occurrence: US)
  Receive Date: 20180405
  Receipt Date: 20180511
  Transmission Date: 20180711
  Serious: Yes (Death, Hospitalization, Other)
  Sender: FDA-Public Use
  Company Number: US-PFIZER INC-2018137451

PATIENT
  Age: 50 Year
  Sex: Female
  Weight: 61.8 kg

DRUGS (11)
  1. SUTENT [Suspect]
     Active Substance: SUNITINIB MALATE
     Dosage: 50 MG, DAILY
     Route: 048
     Dates: start: 20180331, end: 20180401
  2. BENZONATATE. [Concomitant]
     Active Substance: BENZONATATE
     Dosage: 200 MG, AS NEEDED (TID, PRN)
     Route: 048
  3. SUTENT [Suspect]
     Active Substance: SUNITINIB MALATE
     Indication: RENAL CELL CARCINOMA
     Dosage: 50 MG, DAILY
     Dates: start: 20180330
  4. SUTENT [Suspect]
     Active Substance: SUNITINIB MALATE
     Dosage: 37.5 MG, DAILY
     Dates: end: 2018
  5. IBUPROFEN. [Concomitant]
     Active Substance: IBUPROFEN
     Dosage: 200 MG, 4X/DAY(Q6HR)
     Route: 048
  6. ACETAMINOPHEN. [Concomitant]
     Active Substance: ACETAMINOPHEN
     Dosage: 500 MG, 4X/DAY (Q6HR)
     Route: 048
  7. OXYCODONE [Concomitant]
     Active Substance: OXYCODONE
     Dosage: 2.5 MG, AS NEEDED [2.5 MG=0.5 TAB(S), ORAL, Q6HR (INTERVAL) PRN]
     Route: 048
  8. OXYCODONE [Concomitant]
     Active Substance: OXYCODONE
     Dosage: 20 MG, AS NEEDED [Q4HR (INTERVAL), PRN]
  9. SUTENT [Suspect]
     Active Substance: SUNITINIB MALATE
     Dosage: 37.5 MG, DAILY
     Route: 048
     Dates: start: 20180411, end: 20180419
  10. CODEINE GUAIFENESIN [Concomitant]
     Active Substance: CODEINE PHOSPHATE\GUAIFENESIN
     Dosage: 3.75 ML, AS NEEDED [CODEINE 7.5 MG-GUAIFENESIN 225MG,/5ML ORAL LIQUID,3.75ML,Q6HR(INTERVAL) PRN]
     Route: 048
  11. SUNITINIB [Concomitant]
     Active Substance: SUNITINIB

REACTIONS (25)
  - Neoplasm progression [Fatal]
  - Dysuria [Unknown]
  - Urinary incontinence [Unknown]
  - Blood glucose increased [Unknown]
  - Blood albumin decreased [Unknown]
  - White blood cell count increased [Unknown]
  - Red cell distribution width increased [Unknown]
  - Lymphocyte count decreased [Unknown]
  - Atrioventricular block [Unknown]
  - Mean cell volume abnormal [Unknown]
  - Hallucination [Unknown]
  - Weight decreased [Unknown]
  - Asthenia [Unknown]
  - Blood magnesium increased [Unknown]
  - Confusional state [Unknown]
  - Cough [Unknown]
  - Fatigue [Unknown]
  - Blood urea increased [Unknown]
  - Mean cell haemoglobin decreased [Unknown]
  - Neutrophil count increased [Unknown]
  - Aspartate aminotransferase increased [Unknown]
  - Bradycardia [Recovered/Resolved]
  - Oral candidiasis [Unknown]
  - Dysphagia [Unknown]
  - Dizziness [Unknown]

NARRATIVE: CASE EVENT DATE: 201804
